FAERS Safety Report 19995177 (Version 1)
Quarter: 2021Q4

REPORT INFORMATION
  Report Type: Spontaneous
  Country: US (occurrence: US)
  Receive Date: 20211025
  Receipt Date: 20211025
  Transmission Date: 20220303
  Serious: Yes (Hospitalization)
  Sender: FDA-Public Use
  Company Number: US-NOVARTISPH-NVSC2021US239627

PATIENT
  Age: 30 Year
  Sex: Female

DRUGS (1)
  1. HYDROXYZINE [Suspect]
     Active Substance: HYDROXYZINE HYDROCHLORIDE
     Indication: Product used for unknown indication
     Dosage: 90 DF (TABLET)
     Route: 065

REACTIONS (7)
  - Intentional overdose [Unknown]
  - Distributive shock [Unknown]
  - Suicide attempt [Unknown]
  - Tachycardia [Unknown]
  - Tachypnoea [Unknown]
  - Hypotension [Unknown]
  - Lethargy [Unknown]
